FAERS Safety Report 4538353-6 (Version None)
Quarter: 2004Q4

REPORT INFORMATION
  Report Type: 
  Country: None (occurrence: None)
  Receive Date: 20041217
  Receipt Date: 20041210
  Transmission Date: 20050328
  Serious: Yes (Hospitalization)
  Sender: FDA-Public Use
  Company Number: CHNY2004GB02295

PATIENT
  Age: 38 Year
  Sex: Male

DRUGS (3)
  1. NICOTINE [Suspect]
     Indication: SMOKING CESSATION THERAPY
     Dosage: TRANSDERMAL
     Route: 062
  2. TRAMADOL HCL [Concomitant]
  3. CO-CODAMOL (CODEINE PHOSPHATE PARACETAMOL) [Concomitant]

REACTIONS (2)
  - COLITIS ULCERATIVE [None]
  - DRUG WITHDRAWAL SYNDROME [None]
